FAERS Safety Report 4817368-4 (Version None)
Quarter: 2005Q3

REPORT INFORMATION
  Report Type: 
  Country: None (occurrence: None)
  Receive Date: 20050929
  Receipt Date: 20050727
  Transmission Date: 20060218
  Serious: No
  Sender: FDA-Public Use
  Company Number: 05P-163-0293685-00

PATIENT
  Age: 53 Year
  Sex: Female
  Weight: 56.6996 kg

DRUGS (12)
  1. HUMIRA [Suspect]
     Indication: RHEUMATOID ARTHRITIS
     Dosage: 40 MG, 1 IN 2 WK, SUBCUTANEOUS; 40 MG, 1 IN 2 WK, SUBCUTANEOUS
     Route: 058
     Dates: start: 20030301, end: 20050401
  2. HUMIRA [Suspect]
     Indication: RHEUMATOID ARTHRITIS
     Dosage: 40 MG, 1 IN 2 WK, SUBCUTANEOUS; 40 MG, 1 IN 2 WK, SUBCUTANEOUS
     Route: 058
     Dates: start: 20050521, end: 20050601
  3. SULFASALAZINE [Concomitant]
  4. CYCLOBENZAPRINE HCL [Concomitant]
  5. AMITRIPTYLINE HCL [Concomitant]
  6. FLUOXETINE HYDROCHLORIDE [Concomitant]
  7. LOVASTATIN [Concomitant]
  8. FLURAZEPAM HCL [Concomitant]
  9. LORAZEPAM [Concomitant]
  10. PREDNISONE [Concomitant]
  11. CALCIUM GLUCONATE [Concomitant]
  12. FOLIC ACID [Concomitant]

REACTIONS (17)
  - ARTHRALGIA [None]
  - BLEPHAROSPASM [None]
  - CHEILITIS [None]
  - CONTUSION [None]
  - DECREASED APPETITE [None]
  - EPISTAXIS [None]
  - JOINT SWELLING [None]
  - LABORATORY TEST ABNORMAL [None]
  - LIP BLISTER [None]
  - PYREXIA [None]
  - SINUSITIS [None]
  - SKIN LESION [None]
  - STOMATITIS [None]
  - SWELLING FACE [None]
  - TINNITUS [None]
  - TONGUE DISORDER [None]
  - WEIGHT DECREASED [None]
